FAERS Safety Report 5388994-1 (Version None)
Quarter: 2007Q3

REPORT INFORMATION
  Report Type: 
  Country: None (occurrence: None)
  Receive Date: 20070717
  Receipt Date: 20070709
  Transmission Date: 20080115
  Serious: Yes (Other)
  Sender: FDA-Public Use
  Company Number: PHBS2007JP10824

PATIENT
  Age: 71 Year
  Sex: Male
  Weight: 70 kg

DRUGS (8)
  1. ZOMETA [Suspect]
     Indication: METASTASES TO BONE
     Dosage: 4 MG, TIW
     Route: 042
     Dates: start: 20060629, end: 20070607
  2. DECADRON [Suspect]
     Indication: PROSTATE CANCER
     Route: 048
     Dates: start: 20040419
  3. HONVAN [Concomitant]
     Indication: PROSTATE CANCER
     Dosage: 200 MG/DAY
     Route: 048
     Dates: start: 20040719
  4. EPADEL [Concomitant]
     Indication: PROPHYLAXIS
     Dosage: 900 MG/DAY
     Route: 048
  5. ZANTAC [Concomitant]
     Indication: PROPHYLAXIS
     Route: 048
     Dates: start: 20060202
  6. STAYBAN [Concomitant]
     Indication: PAIN
     Route: 061
     Dates: start: 20070402
  7. CARNACULIN [Concomitant]
     Indication: CARDIOVASCULAR DISORDER
     Dosage: 150 IU/DAY
     Route: 048
  8. METHYCOBAL [Concomitant]
     Indication: NEUROPATHY PERIPHERAL
     Dosage: 1500 UG/DAY
     Route: 048

REACTIONS (7)
  - BONE DISORDER [None]
  - MOUTH ULCERATION [None]
  - OSTEITIS CONDENSANS [None]
  - OSTEONECROSIS [None]
  - PAIN IN JAW [None]
  - PRIMARY SEQUESTRUM [None]
  - WHITE BLOOD CELL COUNT INCREASED [None]
